FAERS Safety Report 4751482-7 (Version None)
Quarter: 2005Q3

REPORT INFORMATION
  Report Type: 
  Country: None (occurrence: None)
  Receive Date: 20050823
  Receipt Date: 20050823
  Transmission Date: 20060218
  Serious: Yes (Hospitalization)
  Sender: FDA-Public Use
  Company Number: None

PATIENT
  Age: 75 Year
  Sex: Male
  Weight: 119.296 kg

DRUGS (1)
  1. WARFARIN 5MG [Suspect]
     Indication: ATRIAL FIBRILLATION
     Dosage: ORAL, DAILY
     Route: 048

REACTIONS (4)
  - CYANOPSIA [None]
  - INTERNATIONAL NORMALISED RATIO INCREASED [None]
  - LACRIMATION INCREASED [None]
  - VISUAL DISTURBANCE [None]
